FAERS Safety Report 12140093 (Version 2)
Quarter: 2017Q3

REPORT INFORMATION
  Report Type: Spontaneous
  Country: TR (occurrence: TR)
  Receive Date: 20160303
  Receipt Date: 20170809
  Transmission Date: 20171127
  Serious: Yes (Hospitalization, Other)
  Sender: FDA-Public Use
  Company Number: TR-SUN PHARMACEUTICAL INDUSTRIES LTD-2016RR-112533

PATIENT
  Age: 31 Year
  Sex: Male

DRUGS (1)
  1. RISPERIDONE. [Suspect]
     Active Substance: RISPERIDONE
     Indication: DRUG USE DISORDER
     Dosage: 1 MG, DAILY
     Route: 065

REACTIONS (1)
  - Hepatotoxicity [Unknown]
